FAERS Safety Report 9992501 (Version 1)
Quarter: 2014Q1

REPORT INFORMATION
  Report Type: Spontaneous
  Country: US (occurrence: US)
  Receive Date: 20140310
  Receipt Date: 20140310
  Transmission Date: 20141002
  Serious: No
  Sender: FDA-Public Use
  Company Number: US-BAYER-2014-031988

PATIENT
  Age: 36 Year
  Sex: Female

DRUGS (2)
  1. MAGNEVIST [Suspect]
     Indication: NUCLEAR MAGNETIC RESONANCE IMAGING
     Dosage: UNK UNK, ONCE
     Dates: start: 20140224, end: 20140224
  2. MAGNEVIST [Suspect]
     Indication: HAEMANGIOMA

REACTIONS (4)
  - Hypoaesthesia [Not Recovered/Not Resolved]
  - Erythema [Not Recovered/Not Resolved]
  - Oedema mouth [Not Recovered/Not Resolved]
  - Swelling face [Not Recovered/Not Resolved]
